FAERS Safety Report 12464788 (Version 3)
Quarter: 2016Q3

REPORT INFORMATION
  Report Type: Spontaneous
  Country: US (occurrence: US)
  Receive Date: 20160614
  Receipt Date: 20160729
  Transmission Date: 20161109
  Serious: Yes (Hospitalization)
  Sender: FDA-Public Use
  Company Number: US-PFIZER INC-2016299358

PATIENT
  Age: 80 Year
  Sex: Female
  Weight: 59.9 kg

DRUGS (9)
  1. METFORMIN [Concomitant]
     Active Substance: METFORMIN HYDROCHLORIDE
     Indication: DIABETES MELLITUS
     Dosage: 500 MG, UNK (2-3 TIMES PER DAY)
     Route: 048
  2. OMEGA 3 [Concomitant]
     Active Substance: OMEGA-3 FATTY ACIDS
     Indication: CARDIAC DISORDER
     Dosage: 300 MG, 1X/DAY
     Route: 048
  3. CALCIUM VITAMIN D3 [Concomitant]
     Indication: BONE DISORDER
     Dosage: 1 DF, 1X/DAY (1000 MG-2500 MG 1 TABLET ONCE A DAY)
     Route: 048
  4. ASPIRIN. [Concomitant]
     Active Substance: ASPIRIN
     Indication: CARDIAC DISORDER
     Dosage: 81 MG, ALTERNATE DAY (EVERY OTHER DAY BY MOUTH)
     Route: 048
  5. NORVASC [Concomitant]
     Active Substance: AMLODIPINE BESYLATE
     Dosage: 5 MG, DAILY (1 TABLET BY MOUTH DAILY)
     Route: 048
     Dates: end: 201606
  6. LISINOPRIL. [Concomitant]
     Active Substance: LISINOPRIL
     Dosage: 10 MG, DAILY (1 TABLET BY MOUTH DAILY)
     Route: 048
     Dates: end: 201606
  7. CALCIUM VITAMIN D3 [Concomitant]
     Indication: OSTEOPOROSIS
  8. AROMASIN [Suspect]
     Active Substance: EXEMESTANE
     Indication: BREAST CANCER
     Dosage: 25 MG, 1X/DAY (1 TABLET A DAY AFTER MEAL BY MOUTH)
     Route: 048
     Dates: start: 201202
  9. SOTALOL. [Concomitant]
     Active Substance: SOTALOL
     Indication: CARDIAC DISORDER
     Dosage: 80 MG, 2X/DAY
     Route: 048

REACTIONS (4)
  - Drug dose omission [Unknown]
  - Pain [Recovering/Resolving]
  - Diverticulitis [Recovering/Resolving]
  - Condition aggravated [Recovering/Resolving]

NARRATIVE: CASE EVENT DATE: 2016
